FAERS Safety Report 5262423-0 (Version None)
Quarter: 2007Q1

REPORT INFORMATION
  Report Type: 
  Country: None (occurrence: None)
  Receive Date: 20070308
  Receipt Date: 20070308
  Transmission Date: 20070707
  Serious: Yes (Life-Threatening, Disabling, Other)
  Sender: FDA-Public Use
  Company Number: None

PATIENT
  Age: 3 Month
  Sex: Female
  Weight: 77.1115 kg

DRUGS (3)
  1. WARFARIN SODIUM [Suspect]
     Indication: ATRIAL FIBRILLATION
     Dosage: 1 DEPENDS PO
     Route: 048
  2. WARFARIN SODIUM [Suspect]
     Indication: MITRAL VALVE REPAIR
     Dosage: 1 DEPENDS PO
     Route: 048
  3. WARFARIN SODIUM [Suspect]
     Indication: MITRAL VALVE REPLACEMENT
     Dosage: 1 DEPENDS PO
     Route: 048

REACTIONS (10)
  - IMPAIRED HEALING [None]
  - INTERNATIONAL NORMALISED RATIO DECREASED [None]
  - INTERNATIONAL NORMALISED RATIO INCREASED [None]
  - ONYCHOCLASIS [None]
  - RASH ERYTHEMATOUS [None]
  - RASH GENERALISED [None]
  - SCAR [None]
  - SKIN ATROPHY [None]
  - SKIN DISCOLOURATION [None]
  - THERAPEUTIC RESPONSE UNEXPECTED WITH DRUG SUBSTITUTION [None]
